FAERS Safety Report 9263269 (Version 1)
Quarter: 2013Q2

REPORT INFORMATION
  Report Type: Spontaneous
  Country: US (occurrence: US)
  Receive Date: 20130429
  Receipt Date: 20130429
  Transmission Date: 20140414
  Serious: Yes (Other)
  Sender: FDA-Public Use
  Company Number: US-RB-053581-13

PATIENT
  Age: 10 Year
  Sex: Male
  Weight: 98 kg

DRUGS (2)
  1. MUCINEX UNSPECIFIED [Suspect]
     Indication: MALAISE
     Dosage: SINGLE DOSE OF 10ML
     Route: 048
     Dates: start: 20130423
  2. MUCINEX UNSPECIFIED [Suspect]
     Indication: MALAISE
     Dosage: SINGLE DOSE OF 10ML
     Route: 048
     Dates: start: 20130423

REACTIONS (6)
  - Dyspnoea [Recovered/Resolved]
  - Hypersensitivity [Recovered/Resolved]
  - Urticaria [Recovered/Resolved]
  - Confusional state [Recovered/Resolved]
  - Pruritus [Recovered/Resolved]
  - Nausea [Recovered/Resolved]
